FAERS Safety Report 21624839 (Version 4)
Quarter: 2023Q2

REPORT INFORMATION
  Report Type: Spontaneous
  Country: US (occurrence: US)
  Receive Date: 20221122
  Receipt Date: 20230526
  Transmission Date: 20230722
  Serious: Yes (Death, Life-Threatening, Disabling, Other)
  Sender: FDA-Public Use
  Company Number: US-BRISTOL-MYERS SQUIBB COMPANY-2022-139982

PATIENT
  Age: 69 Year
  Sex: Male

DRUGS (16)
  1. OPDIVO [Suspect]
     Active Substance: NIVOLUMAB
     Indication: Colon cancer stage IV
     Route: 042
     Dates: start: 20220701, end: 20220718
  2. OPDIVO [Suspect]
     Active Substance: NIVOLUMAB
     Dosage: 3 MG /KG
     Route: 042
     Dates: start: 20220801, end: 20220912
  3. REGORAFENIB [Suspect]
     Active Substance: REGORAFENIB
     Indication: Colon cancer stage IV
     Dosage: 80 MG DAILY X 21 DAYS EVERY 28 DAYS
     Route: 048
     Dates: start: 20220705, end: 20220911
  4. REGORAFENIB [Suspect]
     Active Substance: REGORAFENIB
     Dosage: 120 MG DAILY X 21 DAYS EVERY 28 DAYS
     Route: 048
     Dates: start: 20220912, end: 20220919
  5. LOMOTIL [Concomitant]
     Active Substance: ATROPINE SULFATE\DIPHENOXYLATE HYDROCHLORIDE
     Indication: Diarrhoea
     Dosage: 2.5 MG TO0.025MG PRN
     Route: 048
  6. PROCHLORPERAZINE EDISYLATE [Concomitant]
     Active Substance: PROCHLORPERAZINE EDISYLATE
     Indication: Nausea
     Dosage: PRN
     Route: 048
  7. LONSURF [Concomitant]
     Active Substance: TIPIRACIL HYDROCHLORIDE\TRIFLURIDINE
     Indication: Product used for unknown indication
     Dates: start: 20220926, end: 20221201
  8. PREDNISONE [Concomitant]
     Active Substance: PREDNISONE
     Indication: Product used for unknown indication
  9. MVASI [Concomitant]
     Active Substance: BEVACIZUMAB-AWWB
     Indication: Product used for unknown indication
     Dates: start: 20220926, end: 20221201
  10. MVASI [Concomitant]
     Active Substance: BEVACIZUMAB-AWWB
     Dates: start: 20200728, end: 20220127
  11. PANITUMUMAB [Concomitant]
     Active Substance: PANITUMUMAB
     Indication: Product used for unknown indication
     Dates: start: 20220222
  12. PANITUMUMAB [Concomitant]
     Active Substance: PANITUMUMAB
     Dates: start: 20221205, end: 20221214
  13. FLUOROURACIL\IRINOTECAN\LEUCOVORIN [Concomitant]
     Active Substance: FLUOROURACIL\IRINOTECAN\LEUCOVORIN
     Indication: Product used for unknown indication
     Dates: start: 20221205, end: 20221214
  14. FLUOROURACIL\IRINOTECAN\LEUCOVORIN [Concomitant]
     Active Substance: FLUOROURACIL\IRINOTECAN\LEUCOVORIN
     Dates: start: 20220222
  15. FLUOROURACIL\IRINOTECAN\LEUCOVORIN [Concomitant]
     Active Substance: FLUOROURACIL\IRINOTECAN\LEUCOVORIN
     Dates: start: 20220308, end: 20220630
  16. POTASSIUM [Concomitant]
     Active Substance: POTASSIUM
     Indication: Product used for unknown indication
     Route: 048

REACTIONS (1)
  - Malignant neoplasm progression [Fatal]

NARRATIVE: CASE EVENT DATE: 20220906
